FAERS Safety Report 9701236 (Version 2)
Quarter: 2013Q4

REPORT INFORMATION
  Report Type: Spontaneous
  Country: US (occurrence: US)
  Receive Date: 20131121
  Receipt Date: 20131121
  Transmission Date: 20140711
  Serious: No
  Sender: FDA-Public Use
  Company Number: US-GILEAD-2008-0016007

PATIENT
  Sex: Female
  Weight: 77.11 kg

DRUGS (9)
  1. LETAIRIS [Suspect]
     Indication: PULMONARY ARTERIAL HYPERTENSION
     Route: 048
     Dates: start: 20080404
  2. ANACIN [Concomitant]
     Route: 048
  3. PRINIVIL [Concomitant]
     Route: 048
  4. METHOTREXATE [Concomitant]
     Route: 048
  5. REVATIO [Concomitant]
     Route: 048
  6. LOPRESSOR [Concomitant]
     Route: 048
  7. FOLIC ACID [Concomitant]
     Route: 048
  8. CALCIUM [Concomitant]
     Route: 048
  9. ATIVAN [Concomitant]
     Route: 048

REACTIONS (7)
  - Drug interaction [Unknown]
  - Fatigue [Unknown]
  - Asthenia [Unknown]
  - Arthralgia [Unknown]
  - Joint stiffness [Unknown]
  - Headache [Unknown]
  - Palpitations [Unknown]
